FAERS Safety Report 18897842 (Version 1)
Quarter: 2021Q1

REPORT INFORMATION
  Report Type: Spontaneous
  Country: US (occurrence: US)
  Receive Date: 20210212
  Receipt Date: 20210212
  Transmission Date: 20210420
  Serious: No
  Sender: FDA-Public Use
  Company Number: None

PATIENT
  Age: 41 Year
  Sex: Female
  Weight: 55.5 kg

DRUGS (5)
  1. FAMOTIDINE PF INJECTION 40 MG [Concomitant]
     Dates: start: 20210212
  2. ADRIAMYCIN [Suspect]
     Active Substance: DOXORUBICIN HYDROCHLORIDE
     Indication: BREAST CANCER FEMALE
     Dosage: ?          OTHER FREQUENCY:ONCE;?
     Route: 042
     Dates: start: 20210212
  3. APREPITANT INJECTION 130 MG [Concomitant]
     Dates: start: 20210212
  4. PALONOSETRON INJECTION 0.25 MG [Concomitant]
     Dates: start: 20210212
  5. DEXAMETHASONE 12 MG IN SODIUM CHLORIDE 0.9 % 25 ML IVPB [Concomitant]
     Dates: start: 20210212

REACTIONS (4)
  - Nausea [None]
  - Throat irritation [None]
  - Infusion related reaction [None]
  - Dyspnoea [None]

NARRATIVE: CASE EVENT DATE: 20210212
